FAERS Safety Report 8941376 (Version 1)
Quarter: 2012Q4

REPORT INFORMATION
  Report Type: 
  Country: IE (occurrence: IE)
  Receive Date: 20121203
  Receipt Date: 20121203
  Transmission Date: 20130627
  Serious: Yes (Hospitalization)
  Sender: FDA-Public Use
  Company Number: IE-ELI_LILLY_AND_COMPANY-IE201211007392

PATIENT
  Sex: Female

DRUGS (8)
  1. FORSTEO [Suspect]
     Indication: OSTEOPOROSIS
     Dosage: 20 ug, UNK
     Route: 058
     Dates: start: 20121024
  2. PANADOL [Concomitant]
  3. LYRICA [Concomitant]
  4. COVERSYL [Concomitant]
  5. NEXIUM [Concomitant]
  6. VESITIRIM [Concomitant]
  7. VAGIFEM [Concomitant]
  8. TRAMADOL [Concomitant]

REACTIONS (2)
  - Femur fracture [Recovering/Resolving]
  - Fall [Recovered/Resolved with Sequelae]
